FAERS Safety Report 5835466-3 (Version None)
Quarter: 2008Q3

REPORT INFORMATION
  Report Type: 
  Country: None (occurrence: None)
  Receive Date: 20080806
  Receipt Date: 20080729
  Transmission Date: 20090109
  Serious: Yes (Other)
  Sender: FDA-Public Use
  Company Number: US-AVENTIS-200718316US

PATIENT
  Sex: Female

DRUGS (12)
  1. KETEK [Suspect]
     Dates: start: 20060301, end: 20060301
  2. AUGMENTIN '125' [Concomitant]
     Dates: start: 20040415, end: 20040425
  3. AUGMENTIN '125' [Concomitant]
     Dates: start: 20040924, end: 20041008
  4. AUGMENTIN '125' [Concomitant]
     Indication: ACUTE SINUSITIS
     Dates: start: 20040415, end: 20040425
  5. AUGMENTIN '125' [Concomitant]
     Dates: start: 20040924, end: 20041008
  6. ALLEGRA-D 12 HOUR [Concomitant]
     Dosage: DOSE: BID FOR 10 DAYS
     Dates: start: 20040415, end: 20040425
  7. ALLEGRA-D 12 HOUR [Concomitant]
     Dosage: DOSE: BID AS NEEDED
     Dates: start: 20040924
  8. ALLEGRA-D 12 HOUR [Concomitant]
     Indication: ACUTE SINUSITIS
     Dosage: DOSE: BID FOR 10 DAYS
     Dates: start: 20040415, end: 20040425
  9. ALLEGRA-D 12 HOUR [Concomitant]
     Dosage: DOSE: BID AS NEEDED
     Dates: start: 20040924
  10. LOTRISONE [Concomitant]
     Dosage: DOSE: UNK
     Dates: start: 20041105
  11. ALLEGRA [Concomitant]
     Dates: start: 20050104
  12. MEDROL [Concomitant]
     Dosage: DOSE: UNK
     Dates: start: 20050104

REACTIONS (4)
  - ALANINE AMINOTRANSFERASE INCREASED [None]
  - ASPARTATE AMINOTRANSFERASE INCREASED [None]
  - HEPATIC ENZYME INCREASED [None]
  - INJURY [None]
